FAERS Safety Report 4742443-2 (Version None)
Quarter: 2005Q3

REPORT INFORMATION
  Report Type: 
  Country: None (occurrence: None)
  Receive Date: 20050811
  Receipt Date: 20050802
  Transmission Date: 20060218
  Serious: Yes (Hospitalization)
  Sender: FDA-Public Use
  Company Number: 200516902GDDC

PATIENT
  Age: 78 Year
  Sex: Male
  Weight: 75 kg

DRUGS (12)
  1. TAXOTERE [Suspect]
     Indication: LUNG ADENOCARCINOMA
     Dosage: DOSE: 10 MG/M2 ON DAYS 1 AND 8 (TOTAL = 36.6MG)
     Route: 042
     Dates: end: 20050414
  2. GM-CSF [Suspect]
     Indication: LUNG ADENOCARCINOMA
     Dosage: DOSE: 100 UG ON DAYS 1-4 (TOTAL = 800UG)
     Route: 058
     Dates: end: 20050410
  3. IMMUNOSTIMULANTS [Suspect]
     Indication: LUNG ADENOCARCINOMA
     Dosage: DOSE: (RV-CEA-TRICOM) 1.2 X10E8 PFU ON DAY 1
     Route: 023
     Dates: start: 20050112
  4. LASIX [Suspect]
     Dosage: DOSE: UNK
  5. COUMADIN [Concomitant]
  6. CYTOMEL [Concomitant]
  7. HEPAGRISEVIT FORTE-N TABLET [Concomitant]
  8. LIPITOR [Concomitant]
  9. PROTONIX [Concomitant]
  10. TIAZAC [Concomitant]
  11. ZAROXOLYN [Concomitant]
  12. ZOMETA [Concomitant]

REACTIONS (5)
  - HYPONATRAEMIA [None]
  - HYPOTENSION [None]
  - MYOCARDIAL INFARCTION [None]
  - MYOCARDIAL ISCHAEMIA [None]
  - PULMONARY HYPERTENSION [None]
